FAERS Safety Report 8597724-1 (Version None)
Quarter: 2012Q3

REPORT INFORMATION
  Report Type: 
  Country: None (occurrence: None)
  Receive Date: 20120816
  Receipt Date: 20120808
  Transmission Date: 20120928
  Serious: Yes (Other)
  Sender: FDA-Public Use
  Company Number: PHHY2012GB068552

PATIENT
  Age: 78 Year
  Sex: Female

DRUGS (1)
  1. ESTRADIOL [Suspect]
     Indication: HORMONE REPLACEMENT THERAPY
     Dosage: 100 MG, UNK
     Route: 062

REACTIONS (8)
  - CONSTIPATION [None]
  - FREQUENT BOWEL MOVEMENTS [None]
  - METASTASES TO LYMPH NODES [None]
  - ABDOMINAL PAIN LOWER [None]
  - VOMITING [None]
  - LARGE INTESTINAL OBSTRUCTION [None]
  - ABDOMINAL DISTENSION [None]
  - ENDOMETRIAL CANCER [None]
